FAERS Safety Report 5261100-X (Version None)
Quarter: 2007Q1

REPORT INFORMATION
  Report Type: 
  Country: None (occurrence: None)
  Receive Date: 20070309
  Receipt Date: 20070305
  Transmission Date: 20070707
  Serious: Yes (Death, Other)
  Sender: FDA-Public Use
  Company Number: US-ELI_LILLY_AND_COMPANY-US200611001091

PATIENT
  Age: 47 Year
  Sex: Male

DRUGS (1)
  1. GEMCITABINE HCL [Suspect]
     Indication: OESOPHAGEAL CARCINOMA
     Dosage: 6 MG/M2, OTHER
     Route: 042
     Dates: start: 19980818, end: 19980820

REACTIONS (3)
  - ACUTE RESPIRATORY FAILURE [None]
  - ASPIRATION [None]
  - TRACHEO-OESOPHAGEAL FISTULA [None]
